FAERS Safety Report 9117441 (Version 1)
Quarter: 2013Q1

REPORT INFORMATION
  Report Type: Spontaneous
  Country: US (occurrence: US)
  Receive Date: 20130225
  Receipt Date: 20130225
  Transmission Date: 20140127
  Serious: No
  Sender: FDA-Public Use
  Company Number: US-PFIZER INC-2013064632

PATIENT
  Age: 46 Year
  Sex: Female
  Weight: 81.63 kg

DRUGS (6)
  1. CELEBREX [Suspect]
     Indication: SPONDYLITIS
     Dosage: 200 MG, 1X/DAY
     Dates: start: 201209
  2. CELEBREX [Suspect]
     Indication: PAIN
     Dosage: 200 MG, 2X/DAY
  3. GLIPIZIDE [Suspect]
     Indication: TYPE 2 DIABETES MELLITUS
     Dosage: 5 MG, 1X/DAY
     Dates: start: 2012
  4. METFORMIN [Concomitant]
     Indication: TYPE 2 DIABETES MELLITUS
     Dosage: 1000 MG, 2X/DAY
  5. NEURONTIN [Concomitant]
     Dosage: 300 MG, 3X/DAY
     Dates: start: 201202
  6. ZOLOFT [Concomitant]
     Dosage: UNK
     Dates: start: 201202

REACTIONS (4)
  - Blood glucose decreased [Unknown]
  - Drug intolerance [Unknown]
  - Pain [Not Recovered/Not Resolved]
  - Spondylitis [Not Recovered/Not Resolved]
